FAERS Safety Report 6372972-X (Version None)
Quarter: 2009Q3

REPORT INFORMATION
  Report Type: 
  Country: None (occurrence: None)
  Receive Date: 20090924
  Receipt Date: 20081218
  Transmission Date: 20100115
  Serious: Yes (Other)
  Sender: FDA-Public Use
  Company Number: US-ASTRAZENECA-2008UW28313

PATIENT
  Age: 3 Year
  Sex: Male
  Weight: 19.1 kg

DRUGS (5)
  1. SEROQUEL [Suspect]
     Indication: BIPOLAR DISORDER
     Route: 048
     Dates: start: 20081217
  2. SEROQUEL [Suspect]
     Indication: SLEEP DISORDER
     Route: 048
     Dates: start: 20081217
  3. SEROQUEL [Suspect]
     Indication: ATTENTION DEFICIT/HYPERACTIVITY DISORDER
     Route: 048
     Dates: start: 20081217
  4. DEPAKOTE [Concomitant]
  5. FOCALIN [Concomitant]

REACTIONS (2)
  - MOVEMENT DISORDER [None]
  - MUSCLE TWITCHING [None]
